FAERS Safety Report 23635082 (Version 1)
Quarter: 2024Q1

REPORT INFORMATION
  Report Type: Spontaneous
  Country: US (occurrence: US)
  Receive Date: 20240315
  Receipt Date: 20240315
  Transmission Date: 20240409
  Serious: No
  Sender: FDA-Public Use
  Company Number: US-PADAGIS-2024PAD00343

PATIENT

DRUGS (1)
  1. NYSTATIN\TRIAMCINOLONE ACETONIDE [Suspect]
     Active Substance: NYSTATIN\TRIAMCINOLONE ACETONIDE
     Indication: Wound
     Dosage: UNK
     Route: 065
     Dates: start: 20240224

REACTIONS (4)
  - Insomnia [Unknown]
  - Application site pain [Unknown]
  - Headache [Unknown]
  - Product use in unapproved indication [Unknown]

NARRATIVE: CASE EVENT DATE: 20240224
